FAERS Safety Report 6261507-8 (Version None)
Quarter: 2009Q3

REPORT INFORMATION
  Report Type: 
  Country: None (occurrence: None)
  Receive Date: 20090707
  Receipt Date: 20090707
  Transmission Date: 20100115
  Serious: Yes (Hospitalization)
  Sender: FDA-Public Use
  Company Number: None

PATIENT
  Sex: Female
  Weight: 106 kg

DRUGS (9)
  1. CETUXIMAB 400 MG/M2 BRISTOL MYERS SQIBB [Suspect]
     Indication: CERVIX CARCINOMA
     Dosage: 800MG X1 IV
     Route: 042
     Dates: start: 20090604, end: 20090604
  2. CETUXIMAB 250 MG/M2 BRISTOL MYERS SQUIBB [Suspect]
     Indication: CERVIX CARCINOMA
     Dosage: 500MG WEEKLY IV
     Route: 042
     Dates: start: 20090615, end: 20090629
  3. LOPERAMIDE HYDROCHLORIDE [Concomitant]
  4. CLOANZEPAM [Concomitant]
  5. LEXAPRO [Concomitant]
  6. METFORMIN HCL [Concomitant]
  7. HYDROCODONE [Concomitant]
  8. PROCHLORPERAZINE [Concomitant]
  9. CIPRO [Concomitant]

REACTIONS (5)
  - ASTHENIA [None]
  - DIARRHOEA [None]
  - FATIGUE [None]
  - MALAISE [None]
  - URINARY TRACT INFECTION [None]
